FAERS Safety Report 15313729 (Version 1)
Quarter: 2018Q3

REPORT INFORMATION
  Report Type: Spontaneous
  Country: US (occurrence: US)
  Receive Date: 20180824
  Receipt Date: 20180824
  Transmission Date: 20181010
  Serious: Yes (Hospitalization, Other)
  Sender: FDA-Public Use
  Company Number: US-ROCHE-2173105

PATIENT
  Age: 74 Year
  Sex: Female
  Weight: 81.72 kg

DRUGS (1)
  1. ERIVEDGE [Suspect]
     Active Substance: VISMODEGIB
     Indication: BASAL CELL CARCINOMA
     Route: 065
     Dates: start: 201802, end: 201807

REACTIONS (9)
  - Diarrhoea [Unknown]
  - Blood electrolytes decreased [Unknown]
  - Dehydration [Unknown]
  - Dysgeusia [Unknown]
  - Ageusia [Unknown]
  - Malaise [Unknown]
  - Alopecia [Unknown]
  - Weight decreased [Unknown]
  - Colitis [Unknown]
